FAERS Safety Report 6388869-5 (Version None)
Quarter: 2009Q4

REPORT INFORMATION
  Report Type: 
  Country: None (occurrence: None)
  Receive Date: 20091001
  Receipt Date: 20090922
  Transmission Date: 20100525
  Serious: Yes (Other)
  Sender: FDA-Public Use
  Company Number: ADR29872009

PATIENT
  Age: 6 Decade
  Sex: Female

DRUGS (1)
  1. RAMIPRIL [Suspect]
     Indication: HYPOTENSION
     Dosage: ORAL
     Route: 048

REACTIONS (3)
  - HOT FLUSH [None]
  - LOSS OF CONSCIOUSNESS [None]
  - ROAD TRAFFIC ACCIDENT [None]
